FAERS Safety Report 9205231 (Version 1)
Quarter: 2013Q2

REPORT INFORMATION
  Report Type: Spontaneous
  Country: GB (occurrence: GB)
  Receive Date: 20130402
  Receipt Date: 20130402
  Transmission Date: 20140414
  Serious: Yes (Other)
  Sender: FDA-Public Use
  Company Number: GB-MYLANLABS-2013S1006606

PATIENT
  Age: 56 Year
  Sex: Female

DRUGS (4)
  1. CLOMIPRAMINE [Suspect]
     Indication: ANXIETY
     Route: 048
     Dates: start: 2004
  2. CLOMIPRAMINE [Suspect]
     Indication: DEPRESSION
     Route: 048
     Dates: start: 2004
  3. DIAZEPAM [Concomitant]
     Indication: ANXIETY
     Route: 048
  4. PROPRANOLOL [Concomitant]
     Indication: ANXIETY

REACTIONS (1)
  - Breast cancer [Recovering/Resolving]
